FAERS Safety Report 21189839 (Version 2)
Quarter: 2022Q3

REPORT INFORMATION
  Report Type: Spontaneous
  Country: CO (occurrence: CO)
  Receive Date: 20220809
  Receipt Date: 20220818
  Transmission Date: 20221027
  Serious: Yes (Other)
  Sender: FDA-Public Use
  Company Number: CO-PFIZER INC-202201041235

PATIENT
  Age: 73 Year
  Sex: Female

DRUGS (1)
  1. GENOTROPIN [Suspect]
     Active Substance: SOMATROPIN
     Indication: Growth hormone deficiency
     Dosage: DAILY DOSES OF 0.3 (PENCIL UNIT), UNSPECIFIED FREQUENCY

REACTIONS (3)
  - Toxic skin eruption [Unknown]
  - Cutaneous vasculitis [Unknown]
  - Lichen planus [Unknown]
